FAERS Safety Report 4804244-6 (Version None)
Quarter: 2005Q4

REPORT INFORMATION
  Report Type: 
  Country: None (occurrence: None)
  Receive Date: 20051017
  Receipt Date: 20050930
  Transmission Date: 20060501
  Serious: Yes (Hospitalization)
  Sender: FDA-Public Use
  Company Number: 217859

PATIENT
  Age: 55 Year
  Sex: Male
  Weight: 78 kg

DRUGS (4)
  1. AVASTIN (BEVACIZUMAB) PWDR + SOLVENT, INFUSION SOLN, 100MG [Suspect]
     Indication: COLORECTAL CANCER METASTATIC
     Dosage: 390 MG
     Dates: start: 20050728
  2. ERLOTINIB (ERLOTINIB) TABLET, 100MG [Suspect]
     Indication: COLORECTAL CANCER METASTATIC
     Dosage: 100MG, QD, ORAL
     Route: 048
     Dates: start: 20050728
  3. CAPECITABINE (CAECITABINE) [Suspect]
     Indication: COLORECTAL CANCER METASTATIC
     Dosage: 5500 MG, ORAL
     Route: 048
     Dates: start: 20050728
  4. OXALIPLATIN (OXALIPLATIN) [Suspect]
     Indication: COLORECTAL CANCER METASTATIC
     Dosage: 190 MG, INTRAVENOUS
     Route: 042
     Dates: start: 20050728

REACTIONS (5)
  - BLOOD CREATINE INCREASED [None]
  - DIARRHOEA [None]
  - GENERAL PHYSICAL HEALTH DETERIORATION [None]
  - HYPOVOLAEMIC SHOCK [None]
  - INTESTINAL OBSTRUCTION [None]
